FAERS Safety Report 17276745 (Version 1)
Quarter: 2020Q1

REPORT INFORMATION
  Report Type: Spontaneous
  Country: US (occurrence: US)
  Receive Date: 20200116
  Receipt Date: 20200116
  Transmission Date: 20200409
  Serious: Yes (Death, Hospitalization, Other)
  Sender: FDA-Public Use
  Company Number: US-APOTEX-2020AP006461

PATIENT
  Age: 81 Year
  Sex: Male

DRUGS (2)
  1. LACOSAMIDE. [Suspect]
     Active Substance: LACOSAMIDE
     Indication: PRODUCT USED FOR UNKNOWN INDICATION
     Dosage: 200 MG, UNK
     Route: 048
  2. LEVETIRACETAM EXTENDED-RELEASE TABLETS [Suspect]
     Active Substance: LEVETIRACETAM
     Indication: PRODUCT USED FOR UNKNOWN INDICATION
     Dosage: UNK, UNKNOWN
     Route: 048

REACTIONS (7)
  - Toxicity to various agents [Fatal]
  - Intentional product use issue [Fatal]
  - Bradycardia [Fatal]
  - Atrioventricular block complete [Fatal]
  - Ventricular tachycardia [Fatal]
  - Seizure [Fatal]
  - Completed suicide [Fatal]

NARRATIVE: CASE EVENT DATE: 2018
